FAERS Safety Report 9315911 (Version 1)
Quarter: 2013Q2

REPORT INFORMATION
  Report Type: Spontaneous
  Country: GB (occurrence: GB)
  Receive Date: 20130530
  Receipt Date: 20130530
  Transmission Date: 20140414
  Serious: Yes (Other)
  Sender: FDA-Public Use
  Company Number: GB-009507513-1305GBR014788

PATIENT
  Age: 28 Year
  Sex: Female
  Weight: 75 kg

DRUGS (2)
  1. NEXPLANON [Suspect]
     Indication: CONTRACEPTION
     Dosage: UNK
     Route: 059
     Dates: start: 20120514, end: 20130510
  2. FOLIC ACID [Concomitant]

REACTIONS (5)
  - Muscle spasms [Unknown]
  - Pregnancy test urine positive [Recovered/Resolved with Sequelae]
  - Breast tenderness [Unknown]
  - Vaginal haemorrhage [Unknown]
  - Human chorionic gonadotropin negative [Unknown]
